FAERS Safety Report 7454361-X (Version None)
Quarter: 2011Q2

REPORT INFORMATION
  Report Type: 
  Country: None (occurrence: None)
  Receive Date: 20110503
  Receipt Date: 20110420
  Transmission Date: 20111010
  Serious: Yes (Other)
  Sender: FDA-Public Use
  Company Number: ZA-JNJFOC-20110411215

PATIENT
  Sex: Male

DRUGS (2)
  1. NIZORAL [Suspect]
     Indication: PRODUCT USED FOR UNKNOWN INDICATION
     Route: 065
  2. CORTICOSTEROIDS (NOS) [Concomitant]
     Indication: PROSTATE CANCER
     Route: 065

REACTIONS (3)
  - CONJUNCTIVAL DISORDER [None]
  - EYELID DISORDER [None]
  - INCORRECT DOSE ADMINISTERED [None]
